FAERS Safety Report 26055956 (Version 1)
Quarter: 2025Q4

REPORT INFORMATION
  Report Type: Report from Study
  Country: CO (occurrence: CO)
  Receive Date: 20251118
  Receipt Date: 20251118
  Transmission Date: 20260117
  Serious: Yes (Other)
  Sender: ABBVIE
  Company Number: CO-JNJFOC-20251029844

PATIENT
  Age: 57 Year
  Sex: Male
  Weight: 64 kg

DRUGS (1)
  1. IMBRUVICA [Suspect]
     Active Substance: IBRUTINIB
     Indication: Mantle cell lymphoma
     Dosage: LAST DOSE ON 26-SEP-2025
     Route: 048
     Dates: start: 20250401

REACTIONS (2)
  - Bone marrow transplant [Unknown]
  - Product dose omission issue [Unknown]
